FAERS Safety Report 5339467-3 (Version None)
Quarter: 2007Q2

REPORT INFORMATION
  Report Type: 
  Country: None (occurrence: None)
  Receive Date: 20070404
  Receipt Date: 20060720
  Transmission Date: 20071010
  Serious: Yes (Other)
  Sender: FDA-Public Use
  Company Number: 2006058129

PATIENT
  Sex: Male

DRUGS (3)
  1. GEODON [Suspect]
     Indication: DRUG USE FOR UNKNOWN INDICATION
     Dosage: 180 MG (180 MG, 1 IN 1 D) ORAL
     Route: 048
     Dates: start: 20030909, end: 20060425
  2. ADDERALL XR (AMFETAMINE ASPARTATE, AMFETAMINE SULFATE, DEXAMFETAMINE S [Concomitant]
  3. WELLBUTRIN XL [Concomitant]

REACTIONS (2)
  - MIGRAINE [None]
  - TARDIVE DYSKINESIA [None]
